FAERS Safety Report 8343999-3 (Version None)
Quarter: 2012Q2

REPORT INFORMATION
  Report Type: 
  Country: None (occurrence: None)
  Receive Date: 20120508
  Receipt Date: 20120426
  Transmission Date: 20120825
  Serious: Yes (Hospitalization)
  Sender: FDA-Public Use
  Company Number: US-EISAI INC-E7867-00260-CLI-US

PATIENT
  Sex: Male

DRUGS (4)
  1. AVASTIN [Suspect]
     Indication: GLIOBLASTOMA
     Dosage: UNKNOWN
     Dates: start: 20120326
  2. AVASTIN [Suspect]
     Dosage: UNKNOWN
     Dates: start: 20120409
  3. GLIADEL [Suspect]
     Indication: GLIOBLASTOMA
     Dosage: UNKNOWN
     Route: 018
     Dates: start: 20120210
  4. TEMOZOLOMIDE [Suspect]
     Indication: GLIOBLASTOMA
     Dosage: UNKNOWN
     Dates: start: 20120319

REACTIONS (3)
  - PULMONARY EMBOLISM [None]
  - DEEP VEIN THROMBOSIS [None]
  - FATIGUE [None]
